FAERS Safety Report 21070248 (Version 1)
Quarter: 2022Q3

REPORT INFORMATION
  Report Type: Spontaneous
  Country: PT (occurrence: PT)
  Receive Date: 20220712
  Receipt Date: 20220712
  Transmission Date: 20221026
  Serious: Yes (Hospitalization)
  Sender: FDA-Public Use
  Company Number: PT-ARBOR PHARMACEUTICALS, LLC-PT-2022ARB001535

PATIENT

DRUGS (4)
  1. TRIPTODUR [Suspect]
     Active Substance: TRIPTORELIN
     Indication: Hormone-refractory prostate cancer
     Dosage: 6/6 M, STRENGTH: NOT REPORTED (22.5 MG)
     Route: 065
  2. TRIPTODUR [Suspect]
     Active Substance: TRIPTORELIN
  3. TRIPTODUR [Suspect]
     Active Substance: TRIPTORELIN
  4. ERLEADA [Suspect]
     Active Substance: APALUTAMIDE
     Indication: Hormone-refractory prostate cancer
     Dosage: UNK
     Route: 048
     Dates: start: 202203, end: 2022

REACTIONS (1)
  - Hypersensitivity myocarditis [Unknown]

NARRATIVE: CASE EVENT DATE: 20220501
